FAERS Safety Report 11820875 (Version 1)
Quarter: 2015Q4

REPORT INFORMATION
  Report Type: Spontaneous
  Country: US (occurrence: US)
  Receive Date: 20151210
  Receipt Date: 20151210
  Transmission Date: 20160305
  Serious: No
  Sender: FDA-Public Use
  Company Number: US-JNJFOC-20150717799

PATIENT
  Age: 70 Year
  Sex: Female

DRUGS (5)
  1. MILK THISTLE [Concomitant]
     Active Substance: MILK THISTLE
  2. IMBRUVICA [Suspect]
     Active Substance: IBRUTINIB
     Indication: LYMPHOMA
     Route: 048
     Dates: start: 20140409
  3. FLAXSEED [Concomitant]
     Active Substance: FLAX SEED
  4. COENZYME Q10 [Concomitant]
     Active Substance: UBIDECARENONE
  5. NEORAL [Concomitant]
     Active Substance: CYCLOSPORINE

REACTIONS (4)
  - Incorrect dose administered [Recovered/Resolved]
  - Abdominal pain [Not Recovered/Not Resolved]
  - Confusional state [Not Recovered/Not Resolved]
  - Off label use [Unknown]

NARRATIVE: CASE EVENT DATE: 20140409
